FAERS Safety Report 9303281 (Version 1)
Quarter: 2013Q2

REPORT INFORMATION
  Report Type: Spontaneous
  Country: US (occurrence: None)
  Receive Date: 20130521
  Receipt Date: 20130521
  Transmission Date: 20140414
  Serious: Yes (Other)
  Sender: FDA-Public Use
  Company Number: None

PATIENT
  Age: 52 Year
  Sex: Male
  Weight: 104.33 kg

DRUGS (1)
  1. BUDESONIDE [Suspect]
     Indication: NASAL POLYPS
     Dosage: DILUTED IN SINUS WASH
     Dates: start: 20130410, end: 20130417

REACTIONS (1)
  - Blood pressure systolic increased [None]
